FAERS Safety Report 26079783 (Version 2)
Quarter: 2025Q4

REPORT INFORMATION
  Report Type: Report from Study
  Country: US (occurrence: US)
  Receive Date: 20251123
  Receipt Date: 20251205
  Transmission Date: 20260117
  Serious: Yes (Other)
  Sender: ABBVIE
  Company Number: US-ABBVIE-6557090

PATIENT
  Age: 66 Year
  Sex: Female

DRUGS (1)
  1. RINVOQ [Suspect]
     Active Substance: UPADACITINIB
     Indication: Dermatitis atopic
     Route: 048
     Dates: start: 20250815, end: 20251129

REACTIONS (3)
  - Retinal detachment [Recovering/Resolving]
  - Periorbital swelling [Recovering/Resolving]
  - Metamorphopsia [Unknown]

NARRATIVE: CASE EVENT DATE: 20250101
